FAERS Safety Report 9359969 (Version 2)
Quarter: 2013Q3

REPORT INFORMATION
  Report Type: Spontaneous
  Country: US (occurrence: US)
  Receive Date: 20130621
  Receipt Date: 20130729
  Transmission Date: 20140515
  Serious: No
  Sender: FDA-Public Use
  Company Number: US-B.I. PHARMACEUTICALS,INC./RIDGEFIELD-2013-BI-16972BP

PATIENT
  Age: 86 Year
  Sex: Male
  Weight: 76 kg

DRUGS (2)
  1. SPIRIVA [Suspect]
     Indication: BRONCHITIS CHRONIC
     Dosage: 18 MCG
     Route: 048
     Dates: start: 201304
  2. INHALER [Concomitant]

REACTIONS (3)
  - Vomiting [Recovered/Resolved]
  - Night sweats [Recovered/Resolved]
  - Incorrect route of drug administration [Recovered/Resolved]
